FAERS Safety Report 17094326 (Version 1)
Quarter: 2019Q4

REPORT INFORMATION
  Report Type: Spontaneous
  Country: FR (occurrence: FR)
  Receive Date: 20191129
  Receipt Date: 20191129
  Transmission Date: 20200122
  Serious: Yes (Other)
  Sender: FDA-Public Use
  Company Number: FR-009507513-1911FRA012479

PATIENT
  Sex: Male

DRUGS (2)
  1. SINEMET [Suspect]
     Active Substance: CARBIDOPA\LEVODOPA
     Dosage: UNK
     Dates: start: 2019
  2. SINEMET [Suspect]
     Active Substance: CARBIDOPA\LEVODOPA
     Dosage: 100MG/10MG, QID
     Dates: start: 2007

REACTIONS (5)
  - Delirium [Unknown]
  - Sexual activity increased [Not Recovered/Not Resolved]
  - Mood swings [Unknown]
  - Sexual activity increased [Not Recovered/Not Resolved]
  - Jealous delusion [Unknown]

NARRATIVE: CASE EVENT DATE: 2007
